FAERS Safety Report 22169988 (Version 1)
Quarter: 2023Q2

REPORT INFORMATION
  Report Type: Spontaneous
  Country: US (occurrence: US)
  Receive Date: 20230404
  Receipt Date: 20230404
  Transmission Date: 20230721
  Serious: No
  Sender: FDA-Public Use
  Company Number: US-GSKCCFUS-Case-01663655_AE-93897

PATIENT
  Age: 63 Year
  Sex: Male

DRUGS (1)
  1. BELIMUMAB [Suspect]
     Active Substance: BELIMUMAB
     Indication: Product used for unknown indication
     Dosage: 200 MG, WE
     Dates: start: 2017

REACTIONS (1)
  - Coronavirus test positive [Unknown]

NARRATIVE: CASE EVENT DATE: 20230325
